FAERS Safety Report 10045780 (Version 4)
Quarter: 2014Q2

REPORT INFORMATION
  Report Type: Spontaneous
  Country: JP (occurrence: JP)
  Receive Date: 20140328
  Receipt Date: 20140603
  Transmission Date: 20141212
  Serious: Yes (Other)
  Sender: FDA-Public Use
  Company Number: JP-PFIZER INC-2014086915

PATIENT
  Age: 62 Year
  Sex: Male

DRUGS (5)
  1. SOLU-MEDROL [Suspect]
     Indication: INTERSTITIAL LUNG DISEASE
     Dosage: 3 DAYS OF PULSE THERAPY 1G/DAY
     Route: 041
     Dates: start: 2013, end: 2013
  2. MEDROL [Suspect]
     Indication: INTERSTITIAL LUNG DISEASE
     Dosage: 16 MG, DAILY
     Route: 048
     Dates: start: 2013
  3. PLATOSIN [Suspect]
     Indication: OESOPHAGEAL CARCINOMA
     Dosage: UNK
     Dates: start: 2013
  4. FLUOROURACIL [Suspect]
     Indication: OESOPHAGEAL CARCINOMA
     Dosage: UNK
     Dates: start: 2013
  5. DOCETAXEL [Concomitant]
     Indication: OESOPHAGEAL CARCINOMA
     Dosage: UNK, (LOW DOSE)
     Dates: start: 2013

REACTIONS (4)
  - Cytomegalovirus colitis [Recovering/Resolving]
  - Gastrointestinal perforation [Unknown]
  - Melaena [Unknown]
  - Peritonitis [Unknown]
